FAERS Safety Report 8539429-9 (Version None)
Quarter: 2012Q3

REPORT INFORMATION
  Report Type: 
  Country: None (occurrence: None)
  Receive Date: 20120726
  Receipt Date: 20120718
  Transmission Date: 20120928
  Serious: Yes (Hospitalization, Disabling, Other)
  Sender: FDA-Public Use
  Company Number: US-009507513-1203USA03369

PATIENT

DRUGS (11)
  1. CALCIUM (UNSPECIFIED) [Concomitant]
  2. FOSAMAX [Suspect]
     Indication: OSTEOPENIA
     Dosage: 70 MG, QW
     Route: 048
     Dates: start: 20020702, end: 20100614
  3. FOSAMAX [Suspect]
  4. MK-9278 [Concomitant]
     Dosage: 25 YRS
  5. FOSAMAX [Suspect]
     Dosage: 70 MG, QW
     Route: 048
     Dates: start: 20080218, end: 20100602
  6. FOSAMAX [Suspect]
     Indication: SCOLIOSIS
  7. BONIVA [Suspect]
     Indication: SCOLIOSIS
  8. FOSAMAX [Suspect]
     Indication: OSTEOPOROSIS
     Route: 048
     Dates: start: 20020701, end: 20110601
  9. BONIVA [Suspect]
     Indication: OSTEOPENIA
     Dosage: 150 MG, UNK
     Route: 048
     Dates: start: 19960101, end: 20110630
  10. PRILOSEC [Concomitant]
     Dosage: TO PRESENT
     Dates: start: 20020101
  11. HORMONES (UNSPECIFIED) [Concomitant]
     Dates: start: 19990101, end: 20070901

REACTIONS (42)
  - FEMUR FRACTURE [None]
  - OFF LABEL USE [None]
  - URINARY TRACT INFECTION [None]
  - LIMB DISCOMFORT [None]
  - KYPHOSIS [None]
  - FATIGUE [None]
  - FACIAL PAIN [None]
  - NASOPHARYNGITIS [None]
  - DRUG INEFFECTIVE [None]
  - TONSILLAR DISORDER [None]
  - DEEP VEIN THROMBOSIS [None]
  - PLANTAR FASCIITIS [None]
  - IRRITABLE BOWEL SYNDROME [None]
  - EXOSTOSIS [None]
  - TOOTHACHE [None]
  - DRUG HYPERSENSITIVITY [None]
  - ADENOIDAL DISORDER [None]
  - TINNITUS [None]
  - OSTEOPOROSIS [None]
  - HYPERTENSION [None]
  - UTERINE DISORDER [None]
  - BENIGN BREAST NEOPLASM [None]
  - GOITRE [None]
  - PRODUCTIVE COUGH [None]
  - IMPAIRED HEALING [None]
  - INTERNATIONAL NORMALISED RATIO INCREASED [None]
  - JOINT SWELLING [None]
  - PARAESTHESIA [None]
  - MUSCLE SPASMS [None]
  - HIATUS HERNIA [None]
  - FIBROCYSTIC BREAST DISEASE [None]
  - STRESS FRACTURE [None]
  - LOW TURNOVER OSTEOPATHY [None]
  - ATRIAL FIBRILLATION [None]
  - VENOUS INSUFFICIENCY [None]
  - NASAL CONGESTION [None]
  - LIP DRY [None]
  - HYPERCHOLESTEROLAEMIA [None]
  - GASTROOESOPHAGEAL REFLUX DISEASE [None]
  - DIZZINESS [None]
  - JOINT EFFUSION [None]
  - SINUSITIS [None]
